FAERS Safety Report 23549883 (Version 1)
Quarter: 2024Q1

REPORT INFORMATION
  Report Type: Spontaneous
  Country: IN (occurrence: IN)
  Receive Date: 20240221
  Receipt Date: 20240221
  Transmission Date: 20240410
  Serious: Yes (Death)
  Sender: FDA-Public Use
  Company Number: IN-009507513-2402IND004978

PATIENT

DRUGS (4)
  1. POSACONAZOLE [Suspect]
     Active Substance: POSACONAZOLE
     Indication: Rhinocerebral mucormycosis
     Dosage: 300 MG BD ON THE FIRST DAY
     Route: 048
  2. POSACONAZOLE [Suspect]
     Active Substance: POSACONAZOLE
     Dosage: 300 MG OD FOR 6 MONTHS
     Route: 048
  3. ROXITHROMYCIN [Suspect]
     Active Substance: ROXITHROMYCIN
     Indication: Antibiotic therapy
     Dosage: 150 MILLIGRAM, BID
  4. ITRACONAZOLE [Suspect]
     Active Substance: ITRACONAZOLE
     Dosage: WAS GIVEN FOR ANOTHER 3 MONTHS IN A DOSE OF 200 MG BD
     Route: 048

REACTIONS (1)
  - Treatment noncompliance [Fatal]
